FAERS Safety Report 10390581 (Version 2)
Quarter: 2014Q3

REPORT INFORMATION
  Report Type: Spontaneous
  Country: IT (occurrence: None)
  Receive Date: 20140814
  Receipt Date: 20140918
  Transmission Date: 20150326
  Serious: Yes (Other)
  Sender: FDA-Public Use
  Company Number: 2475818

PATIENT
  Age: 40 Year
  Sex: Female
  Weight: 56 kg

DRUGS (7)
  1. BEVACIZUMAB [Concomitant]
     Active Substance: BEVACIZUMAB
  2. TRIMETON/00072502 [Concomitant]
  3. ZOFRAN/0095530/ [Concomitant]
  4. PACLITAXEL. [Suspect]
     Active Substance: PACLITAXEL
     Indication: OVARIAN CANCER
     Dosage: 280 MG INTRAVENOUS ( NOT OTHERWISE SPECIFIED)
     Route: 042
     Dates: start: 20140718, end: 20140718
  5. SOLDESAM [Concomitant]
     Active Substance: DEXAMETHASONE
  6. LANSOPRAZOLE. [Concomitant]
     Active Substance: LANSOPRAZOLE
  7. CARBOPLATIN. [Concomitant]
     Active Substance: CARBOPLATIN

REACTIONS (6)
  - Infusion related reaction [None]
  - Chest pain [None]
  - Hypersensitivity [None]
  - Nausea [None]
  - Cold sweat [None]
  - Presyncope [None]

NARRATIVE: CASE EVENT DATE: 20140718
